FAERS Safety Report 8005159-5 (Version None)
Quarter: 2011Q4

REPORT INFORMATION
  Report Type: 
  Country: None (occurrence: None)
  Receive Date: 20111223
  Receipt Date: 20111219
  Transmission Date: 20120403
  Serious: No
  Sender: FDA-Public Use
  Company Number: US-BAYER-2011-122809

PATIENT
  Age: 38 Year
  Sex: Female
  Weight: 91 kg

DRUGS (2)
  1. PROZAC [Concomitant]
  2. ALEVE (CAPLET) [Suspect]
     Dosage: UNK
     Route: 048
     Dates: end: 20111219

REACTIONS (6)
  - SINUS HEADACHE [None]
  - THROAT IRRITATION [None]
  - NASAL DISCOMFORT [None]
  - FOREIGN BODY [None]
  - SNEEZING [None]
  - DYSPHAGIA [None]
